FAERS Safety Report 6072350-7 (Version None)
Quarter: 2009Q1

REPORT INFORMATION
  Report Type: 
  Country: None (occurrence: None)
  Receive Date: 20090210
  Receipt Date: 20090202
  Transmission Date: 20090719
  Serious: Yes (Other)
  Sender: FDA-Public Use
  Company Number: PHHY2009DE03670

PATIENT
  Sex: Male

DRUGS (3)
  1. IMMUNOSPORIN [Suspect]
     Indication: NEURODERMATITIS
     Dosage: 200 MG/D
     Route: 048
     Dates: start: 20080101
  2. CHOLESTEROL LOWERING DRUG [Concomitant]
  3. RAMIPRIL [Concomitant]
     Dosage: UNK

REACTIONS (2)
  - NEUTROPHIL COUNT ABNORMAL [None]
  - WHITE BLOOD CELL DISORDER [None]
